FAERS Safety Report 9747831 (Version 2)
Quarter: 2013Q4

REPORT INFORMATION
  Report Type: Spontaneous
  Country: IN (occurrence: None)
  Receive Date: 20131206
  Receipt Date: 20131219
  Transmission Date: 20140711
  Serious: Yes (Life-Threatening, Other)
  Sender: FDA-Public Use
  Company Number: ORE201311-000048

PATIENT
  Age: 40 Year
  Sex: Male

DRUGS (3)
  1. BUPRENORPHINE [Suspect]
     Dates: start: 2010
  2. BUPRENORPHINE/NALOXONE [Suspect]
     Route: 060
  3. PHENIRAMINE [Suspect]
     Dates: start: 2010

REACTIONS (8)
  - Suicide attempt [None]
  - Delusion [None]
  - Illusion [None]
  - Hallucination, visual [None]
  - Hallucination, tactile [None]
  - Psychotic disorder [None]
  - Persecutory delusion [None]
  - Treatment noncompliance [None]
